FAERS Safety Report 9274390 (Version 2)
Quarter: 2013Q2

REPORT INFORMATION
  Report Type: Report from Study
  Country: IL (occurrence: IL)
  Receive Date: 20130506
  Receipt Date: 20130510
  Transmission Date: 20140414
  Serious: Yes (Hospitalization)
  Sender: FDA-Public Use
  Company Number: IL-009507513-1302ISR007110

PATIENT
  Age: 1 Year
  Sex: Male
  Weight: 8.7 kg

DRUGS (30)
  1. APREPITANT [Suspect]
     Indication: PROPHYLAXIS OF NAUSEA AND VOMITING
     Dosage: 1.08 ML, ONCE CYCLE 2
     Route: 048
     Dates: start: 20130120, end: 20130120
  2. APREPITANT [Suspect]
     Dosage: 0.72 ML, ONCE CYCLE 2
     Route: 048
     Dates: start: 20130121, end: 20130122
  3. APREPITANT [Suspect]
     Dosage: 1.08 ML, ONCE CYCLE 3
     Route: 048
     Dates: start: 20130210, end: 20130210
  4. APREPITANT [Suspect]
     Dosage: 0.73 ML, ONCE CYCLE 3
     Route: 048
     Dates: start: 20130211, end: 20130212
  5. APREPITANT [Suspect]
     Dosage: 1.2 ML, ONCE CYCLE 4
     Route: 048
     Dates: start: 20130424, end: 20130424
  6. APREPITANT [Suspect]
     Dosage: 0.8 ML, QD, ONCE CYCLE 4
     Route: 048
     Dates: start: 20130425, end: 20130426
  7. ONDANSETRON [Suspect]
     Indication: PROPHYLAXIS OF NAUSEA AND VOMITING
     Dosage: 2 MG, ONCE CYCLE 2
     Route: 042
     Dates: start: 20130120, end: 20130120
  8. ONDANSETRON [Suspect]
     Dosage: 2 MG, TID AT 01:00, 09:00 AND 16:00, CYCLE 2
     Route: 042
     Dates: start: 20130121, end: 20130121
  9. ONDANSETRON [Suspect]
     Dosage: 2 MG, TID, CYCLE 2
     Route: 042
     Dates: start: 20130122, end: 20130122
  10. ONDANSETRON [Suspect]
     Dosage: 2 MG, BID CYCLE 2
     Route: 042
     Dates: start: 20130123, end: 20130123
  11. ONDANSETRON [Suspect]
     Dosage: 1.5 MG, ONCE, CYCLE 1
     Route: 042
     Dates: start: 20121230, end: 20121230
  12. ONDANSETRON [Suspect]
     Dosage: 1.5 MG, TID, CYCLE 1
     Route: 042
     Dates: start: 20121231, end: 20130101
  13. ONDANSETRON [Suspect]
     Dosage: 1.5 MG, BID, CYCLE 1
     Route: 042
     Dates: start: 20130102, end: 20130102
  14. ONDANSETRON [Suspect]
     Dosage: 2 MG, ONCE, CYCLE 3
     Route: 042
     Dates: start: 20130210, end: 20130210
  15. ONDANSETRON [Suspect]
     Dosage: 2 MG, TID, CYCLE 3
     Route: 042
     Dates: start: 20130211, end: 20130211
  16. ONDANSETRON [Suspect]
     Dosage: 2 MG, BID, CYCLE 3
     Route: 042
     Dates: start: 20130212, end: 20130212
  17. ONDANSETRON [Suspect]
     Dosage: 2 MG, BID, CYCLE 3
     Route: 042
     Dates: start: 20130424, end: 20130424
  18. ONDANSETRON [Suspect]
     Dosage: 2 MG, TID
     Route: 042
     Dates: start: 20130425, end: 20130426
  19. ONDANSETRON [Suspect]
     Dosage: 2 MG, BID
     Route: 042
     Dates: start: 20130427, end: 20130427
  20. ONDANSETRON [Suspect]
     Indication: PROPHYLAXIS OF NAUSEA AND VOMITING
     Dosage: 2 MG, BID, CYCLE 1
     Route: 048
     Dates: start: 20130103, end: 20130103
  21. DOXORUBICIN [Suspect]
     Indication: SYNOVIAL SARCOMA
     Dosage: 11.25 MG, QD
     Route: 042
     Dates: start: 20130120, end: 20130121
  22. IFOSFAMIDE [Suspect]
     Indication: CHEMOTHERAPY
     Dosage: 900 MG, QD
     Route: 042
     Dates: start: 20130120, end: 20130122
  23. IFOSFAMIDE [Suspect]
     Indication: SYNOVIAL SARCOMA
  24. THERAPEUTIC RADIOPHARMACEUTICAL (UNSPECIFIED) [Suspect]
     Indication: SYNOVIAL SARCOMA
     Dosage: 1.8 DF, QD
     Dates: start: 20130202, end: 20130411
  25. RESPRIM [Concomitant]
     Dosage: UNK
     Dates: start: 201212
  26. AUGMENTIN [Concomitant]
     Indication: LUNG INFILTRATION
     Dosage: 200 MG, BID
     Route: 048
     Dates: start: 20130115, end: 20130119
  27. FLAGYL [Concomitant]
     Indication: CLOSTRIDIUM DIFFICILE INFECTION
     Dosage: 100 MG, TID
     Route: 048
     Dates: start: 20130109, end: 20130120
  28. PLATELET CONCENTRATE [Concomitant]
     Indication: PLATELET COUNT DECREASED
     Dosage: 150 ML, QD
     Route: 042
     Dates: start: 20130110, end: 20130114
  29. NEUPOGEN [Concomitant]
     Indication: WHITE BLOOD CELL COUNT DECREASED
     Dosage: 40 MICROGRAM, PRN
     Route: 058
     Dates: start: 20121220
  30. AZENIL [Concomitant]
     Indication: LUNG INFILTRATION
     Dosage: 90 MG, QD
     Route: 048
     Dates: start: 20130109, end: 20130114

REACTIONS (4)
  - Febrile neutropenia [Recovered/Resolved]
  - Febrile neutropenia [Recovered/Resolved]
  - Pain in extremity [Recovered/Resolved]
  - Febrile neutropenia [Recovering/Resolving]
